FAERS Safety Report 7426686-5 (Version None)
Quarter: 2011Q2

REPORT INFORMATION
  Report Type: 
  Country: None (occurrence: None)
  Receive Date: 20110420
  Receipt Date: 20110418
  Transmission Date: 20111010
  Serious: Yes (Hospitalization, Disabling, Other)
  Sender: FDA-Public Use
  Company Number: US-PFIZER INC-2011023019

PATIENT
  Sex: Male

DRUGS (3)
  1. COUMADIN [Concomitant]
     Indication: DEEP VEIN THROMBOSIS
     Dosage: UNK
     Dates: start: 20050101, end: 20090101
  2. CHANTIX [Suspect]
     Dosage: STARTING PACK AND CONTINUING PACKS
     Dates: start: 20071228, end: 20080707
  3. PROPOXYPHENE HYDROCHLORIDE [Concomitant]
     Indication: ANALGESIC THERAPY
     Dosage: UNK
     Dates: start: 20050101, end: 20090101

REACTIONS (9)
  - HALLUCINATION, VISUAL [None]
  - PARANOIA [None]
  - BIPOLAR DISORDER [None]
  - DEPRESSION [None]
  - INTENTIONAL OVERDOSE [None]
  - MENTAL DISORDER [None]
  - SUICIDE ATTEMPT [None]
  - ANXIETY [None]
  - ABNORMAL DREAMS [None]
